FAERS Safety Report 10171328 (Version 1)
Quarter: 2014Q2

REPORT INFORMATION
  Report Type: Spontaneous
  Country: US (occurrence: None)
  Receive Date: 20140507
  Receipt Date: 20140507
  Transmission Date: 20141212
  Serious: Yes (Other)
  Sender: FDA-Public Use
  Company Number: E2090-03130-SPO-US

PATIENT
  Age: 17 Year
  Sex: Female

DRUGS (9)
  1. ZONEGRAN [Suspect]
     Indication: CONVULSION
     Route: 048
     Dates: start: 2008, end: 20131031
  2. VIMPAT (LACOSAMIDE) [Concomitant]
  3. ATIVAN (LORAZEPAM) [Concomitant]
  4. AYGESTIN [Concomitant]
  5. ZYPREXA (OLANZAPINE) [Concomitant]
  6. TRAZODONE (TRAZODONE) [Concomitant]
  7. VITAMIN D (ERGOCALCIFEROL) [Concomitant]
  8. PHOSPHORUS [Concomitant]
  9. ESTER-C [Concomitant]

REACTIONS (2)
  - Drug withdrawal convulsions [None]
  - Rash [None]
